FAERS Safety Report 6959072-2 (Version None)
Quarter: 2010Q3

REPORT INFORMATION
  Report Type: 
  Country: None (occurrence: None)
  Receive Date: 20100831
  Receipt Date: 20100825
  Transmission Date: 20110219
  Serious: Yes (Life-Threatening, Hospitalization, Other)
  Sender: FDA-Public Use
  Company Number: DE-ROXANE LABORATORIES, INC.-2010-RO-01137RO

PATIENT
  Age: 21 Year
  Sex: Male
  Weight: 108 kg

DRUGS (6)
  1. TOPIRAMATE [Suspect]
     Indication: GENERALISED NON-CONVULSIVE EPILEPSY
     Dates: start: 20040101
  2. TOPIRAMATE [Suspect]
     Dosage: 400 MG
  3. TOPIRAMATE [Suspect]
     Dosage: 400 MG
  4. TOPIRAMATE [Suspect]
     Dosage: 8000 MG
  5. LORAZEPAM [Suspect]
     Indication: STATUS EPILEPTICUS
     Dosage: 4 MG
     Route: 042
  6. CLOBAZAM [Suspect]
     Dosage: 20 MG

REACTIONS (9)
  - APHASIA [None]
  - COGNITIVE DISORDER [None]
  - DRUG TOXICITY [None]
  - INTENTIONAL OVERDOSE [None]
  - MEMORY IMPAIRMENT [None]
  - NYSTAGMUS [None]
  - SPEECH DISORDER [None]
  - STATUS EPILEPTICUS [None]
  - SUICIDE ATTEMPT [None]
